FAERS Safety Report 4543852-7 (Version None)
Quarter: 2005Q1

REPORT INFORMATION
  Report Type: 
  Country: None (occurrence: None)
  Receive Date: 20050103
  Receipt Date: 20030915
  Transmission Date: 20050727
  Serious: Yes (Hospitalization)
  Sender: FDA-Public Use
  Company Number: GXKR2003GB00458

PATIENT
  Age: 62 Year
  Sex: Male

DRUGS (11)
  1. FUROSEMIDE [Suspect]
     Dosage: 250 MG
  2. LOSEC (OMEPRAZOLE MAGNESIUM) [Suspect]
  3. EXTRANEAL [Suspect]
     Indication: PERITONEAL DIALYSIS
     Dosage: 21, QD, INTRAPERITONEAL
     Route: 033
     Dates: start: 20021219, end: 20030125
  4. DIANEAL PD1 GLUCOSA (CALCIUM CHLORIDE DIHYDRATE, GLUCOSE, MAGNESIUM CH [Concomitant]
  5. DIGOXIN [Concomitant]
  6. NIFEDIPINE (NIFEDIPINE) [Concomitant]
  7. ATENOLOL [Concomitant]
  8. PREDNISOLONE [Concomitant]
  9. CALCICHEW (CALCIUM CARBONATE) [Concomitant]
  10. ERYTHROPOIETIN (ERYTHROPOIETIN) [Concomitant]
  11. TOBRAMYCIN [Concomitant]

REACTIONS (5)
  - DERMATITIS ALLERGIC [None]
  - FUNGAL PERITONITIS [None]
  - PRURITUS [None]
  - RASH ERYTHEMATOUS [None]
  - RASH GENERALISED [None]
